FAERS Safety Report 8761300 (Version 1)
Quarter: 2012Q4

REPORT INFORMATION
  Report Type: Report from Study
  Country: CN (occurrence: CN)
  Receive Date: 20120830
  Receipt Date: 20120830
  Transmission Date: 20130627
  Serious: Yes (Hospitalization)
  Sender: FDA-Public Use
  Company Number: CN-B.I. PHARMACEUTICALS,INC./RIDGEFIELD-2012-CS-01218CS

PATIENT
  Age: 66 Year
  Sex: Male

DRUGS (16)
  1. MAPELOR [Suspect]
     Dosage: 0.2 mg
     Dates: start: 20120605, end: 20120622
  2. GLIMEPIRIDE [Suspect]
     Indication: TYPE 2 DIABETES MELLITUS
     Dosage: 2 mg
  3. SAXAGLIPTIN [Suspect]
     Indication: TYPE 2 DIABETES MELLITUS
     Dates: start: 20111214, end: 20120301
  4. GLUCOPHAGE [Suspect]
     Indication: TYPE 2 DIABETES MELLITUS
     Dosage: 0.5 g
  5. ACARBOSE [Suspect]
     Indication: TYPE 2 DIABETES MELLITUS
     Dosage: 50 mg
  6. HUMULIN NOS [Suspect]
     Indication: TYPE 2 DIABETES MELLITUS
     Dosage: 25 RT
  7. PLACEBO [Suspect]
     Indication: TYPE 2 DIABETES MELLITUS
     Dates: start: 20111214, end: 20120301
  8. FRUSEMIDE (FUROSEMIDE) [Concomitant]
     Dates: start: 20120605
  9. LIPITOR (ATORVASTATIN CALCIUM) [Concomitant]
     Dates: start: 20120605
  10. CALCIUM DOBESILATE (CALCIUM DOBESILATE) [Concomitant]
     Dates: start: 20120605
  11. MECOBALAMIN (MECOBALAMIN) [Concomitant]
     Dates: start: 20120605
  12. SODIUM BICARBONATE (SODIUM BICARBONATE) [Concomitant]
     Dates: start: 20120605
  13. FINASTERIDE (FINASTERIDE) [Concomitant]
     Dosage: 5 mg
     Dates: start: 20120622
  14. ACE INHIBITOR [Concomitant]
  15. ADP ANTAGONIST [Concomitant]
  16. BETA-BLOCKER [Concomitant]

REACTIONS (2)
  - Syncope [Recovered/Resolved]
  - Coronary artery disease [Recovered/Resolved]
